FAERS Safety Report 5636729-7 (Version None)
Quarter: 2008Q1

REPORT INFORMATION
  Report Type: 
  Country: None (occurrence: None)
  Receive Date: 20080219
  Receipt Date: 20080219
  Transmission Date: 20080703
  Serious: No
  Sender: FDA-Public Use
  Company Number: None

PATIENT
  Age: 35 Year
  Sex: Male
  Weight: 74.8435 kg

DRUGS (1)
  1. OXYMETAZOLINE HCL [Suspect]
     Indication: NASAL CONGESTION
     Dosage: 3 SQUIRTS  2X DAILY NASAL
     Route: 045
     Dates: start: 20080210, end: 20080218

REACTIONS (4)
  - INCORRECT DOSE ADMINISTERED [None]
  - MEDICATION ERROR [None]
  - NASAL CONGESTION [None]
  - NASAL INFLAMMATION [None]
